FAERS Safety Report 6816181-6 (Version None)
Quarter: 2010Q3

REPORT INFORMATION
  Report Type: 
  Country: None (occurrence: None)
  Receive Date: 20100702
  Receipt Date: 20100702
  Transmission Date: 20110219
  Serious: Yes (Hospitalization)
  Sender: FDA-Public Use
  Company Number: None

PATIENT
  Age: 63 Year
  Sex: Male
  Weight: 80 kg

DRUGS (12)
  1. CARBOPLATIN [Suspect]
     Indication: SMALL CELL LUNG CANCER STAGE UNSPECIFIED
     Dosage: 676MG DAILY X3 IV
     Route: 042
     Dates: start: 20100105, end: 20100107
  2. ETOPOSIDE [Suspect]
     Indication: SMALL CELL LUNG CANCER STAGE UNSPECIFIED
     Dosage: 204MG DAILY X3 IV
     Route: 042
     Dates: start: 20100105, end: 20100107
  3. ATORVASTATIN [Concomitant]
  4. GLYBURIDE AND METFORMIN HYDROCHLORIDE [Concomitant]
  5. PROCHLORPERAZINE [Concomitant]
  6. BIAFINE [Concomitant]
  7. SENNA-S [Concomitant]
  8. NYSTATIN RINSE [Concomitant]
  9. OXYCODONE HCL [Concomitant]
  10. FLUCONAZOLE [Concomitant]
  11. LIDOCAINE HCL VISCOUS [Concomitant]
  12. MIRACLE MOUTHWASH [Concomitant]

REACTIONS (2)
  - FEBRILE NEUTROPENIA [None]
  - PANCYTOPENIA [None]
